FAERS Safety Report 5414882-8 (Version None)
Quarter: 2007Q3

REPORT INFORMATION
  Report Type: 
  Country: None (occurrence: None)
  Receive Date: 20070815
  Receipt Date: 20070221
  Transmission Date: 20080115
  Serious: No
  Sender: FDA-Public Use
  Company Number: US-KINGPHARMUSA00001-K200700202

PATIENT
  Age: 53 Year
  Sex: Female

DRUGS (1)
  1. SEPTRA [Suspect]
     Indication: PROPHYLAXIS URINARY TRACT INFECTION
     Dosage: UNK, PRN
     Route: 048
     Dates: start: 20070101

REACTIONS (1)
  - EYE PAIN [None]
